FAERS Safety Report 8814081 (Version 1)
Quarter: 2012Q4

REPORT INFORMATION
  Report Type: 
  Country: US (occurrence: US)
  Receive Date: 20120928
  Receipt Date: 20120928
  Transmission Date: 20130627
  Serious: No
  Sender: FDA-Public Use
  Company Number: US-PFIZER INC-2012236099

PATIENT
  Age: 84 Year
  Sex: Male
  Weight: 83 kg

DRUGS (6)
  1. TOVIAZ [Suspect]
     Indication: HYPERTONIC BLADDER
     Dosage: 8 mg, 1x/day
     Route: 048
     Dates: start: 201208
  2. TOVIAZ [Suspect]
     Indication: POLLAKIURIA
  3. TOVIAZ [Suspect]
     Indication: MICTURITION URGENCY
  4. RAPAFLO [Suspect]
     Indication: HYPERTONIC BLADDER
     Dosage: 8 mg, 1x/day
     Route: 048
     Dates: start: 201208
  5. RAPAFLO [Suspect]
     Indication: POLLAKIURIA
  6. RAPAFLO [Suspect]
     Indication: MICTURITION URGENCY

REACTIONS (2)
  - Musculoskeletal stiffness [Not Recovered/Not Resolved]
  - Nasal congestion [Not Recovered/Not Resolved]
